FAERS Safety Report 8419760-8 (Version None)
Quarter: 2012Q2

REPORT INFORMATION
  Report Type: 
  Country: None (occurrence: None)
  Receive Date: 20120607
  Receipt Date: 20120525
  Transmission Date: 20120825
  Serious: Yes (Hospitalization)
  Sender: FDA-Public Use
  Company Number: SK-ACTELION-A-CH2010-39205

PATIENT
  Sex: Male

DRUGS (6)
  1. ZAVESCA [Suspect]
     Indication: NIEMANN-PICK DISEASE
     Dosage: 200 MG, TID
     Route: 048
     Dates: start: 20100301
  2. ZAVESCA [Suspect]
     Dosage: 200 MG, TID
     Route: 048
     Dates: start: 20100504, end: 20100814
  3. ZAVESCA [Suspect]
     Dosage: 100 MG, TID
     Route: 048
     Dates: end: 20100503
  4. ZAVESCA [Suspect]
     Dosage: 100 MG, TID
     Route: 048
     Dates: start: 20101201
  5. VITAMIN B-12 [Concomitant]
  6. ZAVESCA [Suspect]
     Dosage: 100 MG, TID
     Route: 048
     Dates: start: 20071211

REACTIONS (6)
  - LOGORRHOEA [None]
  - AGGRESSION [None]
  - HALLUCINATION [None]
  - ABNORMAL BEHAVIOUR [None]
  - PSYCHOTIC DISORDER DUE TO A GENERAL MEDICAL CONDITION [None]
  - ANXIETY [None]
